FAERS Safety Report 8198702-7 (Version None)
Quarter: 2012Q1

REPORT INFORMATION
  Report Type: 
  Country: None (occurrence: None)
  Receive Date: 20120309
  Receipt Date: 20120124
  Transmission Date: 20120608
  Serious: No
  Sender: FDA-Public Use
  Company Number: US-AMGEN-USASP2012000083

PATIENT
  Age: 58 Year
  Sex: Female

DRUGS (18)
  1. METOPROLOL SUCCINATE [Concomitant]
     Dosage: UNK
     Dates: start: 20070816
  2. FLONASE [Concomitant]
     Dosage: UNK
     Dates: start: 20111019
  3. PROTONIX [Concomitant]
     Dosage: UNK
     Dates: start: 20111219
  4. PAIN RELIEF [Concomitant]
     Dosage: UNK
  5. CYCLOBENZAPRINE HCL [Concomitant]
     Dosage: UNK
     Dates: start: 20081229
  6. PROLIA [Suspect]
     Indication: OSTEOPOROSIS
     Dosage: 60 MG, Q6MO
     Dates: start: 20110531
  7. PREDNISONE [Concomitant]
     Dosage: 20 MG, BID
     Dates: start: 20111222
  8. VITAMIN TAB [Concomitant]
     Dosage: UNK
  9. ATIVAN [Concomitant]
     Dosage: UNK
     Dates: start: 20111018
  10. POLYETHYLENE GLYCOL [Concomitant]
     Dosage: UNK
     Dates: start: 20110406
  11. ADVAIR DISKUS 100/50 [Concomitant]
     Dosage: UNK
     Dates: start: 20100119
  12. LYRICA [Concomitant]
     Dosage: UNK
     Dates: start: 20111112
  13. ALTACE [Concomitant]
     Dosage: UNK
     Dates: start: 20070723
  14. ACTIQ [Concomitant]
     Dosage: UNK
     Dates: start: 20100608
  15. AMOXICILLIN [Concomitant]
     Dosage: UNK
     Dates: start: 20111222
  16. CALCIUM [Concomitant]
     Dosage: UNK
  17. MORPHINE SULFATE [Concomitant]
     Dosage: UNK
     Dates: start: 20110719
  18. VESICARE [Concomitant]

REACTIONS (4)
  - OEDEMA PERIPHERAL [None]
  - NECK PAIN [None]
  - EAR PAIN [None]
  - VIRAL INFECTION [None]
